FAERS Safety Report 24801727 (Version 1)
Quarter: 2025Q1

REPORT INFORMATION
  Report Type: Other
  Country: US (occurrence: US)
  Receive Date: 20250102
  Receipt Date: 20250102
  Transmission Date: 20250409
  Serious: Yes (Other)
  Sender: HLS THERAPEUTICS
  Company Number: US-HLS-202400118

PATIENT
  Age: 35 Year
  Sex: Male

DRUGS (1)
  1. CLOZAPINE [Suspect]
     Active Substance: CLOZAPINE
     Indication: Product used for unknown indication
     Route: 065

REACTIONS (5)
  - Chest pain [Recovering/Resolving]
  - Myocarditis [Recovering/Resolving]
  - Tachycardia [Recovering/Resolving]
  - Psychotic disorder [Unknown]
  - Vaccine interaction [Unknown]
